FAERS Safety Report 20726268 (Version 1)
Quarter: 2022Q2

REPORT INFORMATION
  Report Type: Spontaneous
  Country: US (occurrence: US)
  Receive Date: 20220419
  Receipt Date: 20220419
  Transmission Date: 20220721
  Serious: Yes (Other)
  Sender: FDA-Public Use
  Company Number: US-PFIZER INC-202200533129

PATIENT
  Age: 73 Year
  Sex: Male

DRUGS (2)
  1. PACLITAXEL [Suspect]
     Active Substance: PACLITAXEL
     Indication: Adenocarcinoma
     Dosage: FIVE CYCLES, WEEKLY
  2. CARBOPLATIN [Suspect]
     Active Substance: CARBOPLATIN
     Indication: Adenocarcinoma
     Dosage: FIVE CYCLES, WEEKLY

REACTIONS (4)
  - Second primary malignancy [Unknown]
  - Chloroma [Unknown]
  - Acute myeloid leukaemia [Unknown]
  - Pancytopenia [Unknown]
